FAERS Safety Report 18769470 (Version 1)
Quarter: 2021Q1

REPORT INFORMATION
  Report Type: Spontaneous
  Country: SE (occurrence: SE)
  Receive Date: 20210121
  Receipt Date: 20210121
  Transmission Date: 20210419
  Serious: Yes (Other)
  Sender: FDA-Public Use
  Company Number: SE-BAYER-2021-023954

PATIENT
  Age: 26 Year
  Sex: Female

DRUGS (1)
  1. YASMINELLE [Suspect]
     Active Substance: DROSPIRENONE
     Dosage: UNK
     Route: 048
     Dates: start: 2016

REACTIONS (5)
  - Pain in extremity [Recovered/Resolved with Sequelae]
  - Deep vein thrombosis [Recovered/Resolved with Sequelae]
  - Pain in extremity [Not Recovered/Not Resolved]
  - Venous injury [None]
  - Peripheral swelling [Not Recovered/Not Resolved]

NARRATIVE: CASE EVENT DATE: 201707
